FAERS Safety Report 25918781 (Version 1)
Quarter: 2025Q4

REPORT INFORMATION
  Report Type: Spontaneous
  Country: US (occurrence: None)
  Receive Date: 20251010
  Receipt Date: 20251010
  Transmission Date: 20260118
  Serious: Yes (Other)
  Sender: FDA-CTU
  Company Number: None

PATIENT
  Sex: Male

DRUGS (11)
  1. SKYRIZI [Suspect]
     Active Substance: RISANKIZUMAB-RZAA
     Indication: Crohn^s disease
  2. ADACEL INJ [Concomitant]
  3. ASPIRIN [Concomitant]
     Active Substance: ASPIRIN
  4. ATORVASTATIN TAB 10MG [Concomitant]
  5. ATORVASTATIN TAB 20MG [Concomitant]
  6. BUPROPN HCL TAB 150MG XL [Concomitant]
  7. CYANOCOBALAM INJ 1000MCG [Concomitant]
  8. ENOXAPARIN INJ 40/0.4ML [Concomitant]
  9. FERROUS SULF TAB 325MG [Concomitant]
  10. FLUTICASONE [Concomitant]
     Active Substance: FLUTICASONE
  11. KENALOG-10 INJ 10MG/ML [Concomitant]

REACTIONS (3)
  - Back pain [None]
  - Neck pain [None]
  - Skin cancer [None]
